FAERS Safety Report 5701079-7 (Version None)
Quarter: 2008Q2

REPORT INFORMATION
  Report Type: 
  Country: None (occurrence: None)
  Receive Date: 20080407
  Receipt Date: 20080321
  Transmission Date: 20081010
  Serious: Yes (Hospitalization)
  Sender: FDA-Public Use
  Company Number: DSA_31669_2008

PATIENT
  Sex: Male

DRUGS (12)
  1. DILTIAZEM HYDROCHLORIDE [Suspect]
     Indication: HYPERTENSION
     Dosage: ORAL
     Route: 048
     Dates: start: 20071113, end: 20071123
  2. VASTAREL [Concomitant]
  3. KARDEGIC /00002703/ [Concomitant]
  4. IKOREL [Suspect]
  5. MEDIATENSYL /00631801/ [Concomitant]
  6. BIPRETERAX [Concomitant]
  7. LASILIX /000032601/ [Concomitant]
  8. XATRAL - PROLONGED RELEASE [Concomitant]
  9. AVODART [Concomitant]
  10. TRANXENE [Concomitant]
  11. PARACETAMOL [Concomitant]
  12. INFLUENZA VACCINE [Concomitant]

REACTIONS (10)
  - ANTIPHOSPHOLIPID ANTIBODIES [None]
  - BLOOD CREATINE INCREASED [None]
  - DIARRHOEA [None]
  - PETECHIAE [None]
  - PRURITUS [None]
  - PURPURA [None]
  - RASH ERYTHEMATOUS [None]
  - RASH GENERALISED [None]
  - RASH PAPULAR [None]
  - THROMBOCYTOPENIA [None]
